FAERS Safety Report 24809926 (Version 1)
Quarter: 2025Q1

REPORT INFORMATION
  Report Type: Spontaneous
  Country: US (occurrence: None)
  Receive Date: 20250103
  Receipt Date: 20250103
  Transmission Date: 20250408
  Serious: Yes (Other)
  Sender: FDA-CTU
  Company Number: None

PATIENT
  Age: 52 Year
  Sex: Female
  Weight: 74.25 kg

DRUGS (1)
  1. FLUCONAZOLE [Suspect]
     Active Substance: FLUCONAZOLE
     Indication: Vulvovaginal mycotic infection
     Route: 048
     Dates: start: 20241230, end: 20241231

REACTIONS (5)
  - Erythema [None]
  - Lip swelling [None]
  - Stomatitis [None]
  - Toothache [None]
  - Hypophagia [None]

NARRATIVE: CASE EVENT DATE: 20241231
